FAERS Safety Report 6010680-5 (Version None)
Quarter: 2008Q4

REPORT INFORMATION
  Report Type: 
  Country: None (occurrence: None)
  Receive Date: 20081218
  Receipt Date: 20081211
  Transmission Date: 20090506
  Serious: Yes (Hospitalization)
  Sender: FDA-Public Use
  Company Number: US-AVENTIS-200821033GDDC

PATIENT
  Age: 49 Year
  Sex: Female
  Weight: 54.43 kg

DRUGS (14)
  1. TAXOTERE [Suspect]
     Indication: NASAL SINUS CANCER
     Route: 042
     Dates: start: 20081008, end: 20081030
  2. CISPLATIN [Suspect]
     Indication: NASAL SINUS CANCER
     Route: 042
     Dates: start: 20081008, end: 20081030
  3. FLUOROURACIL [Suspect]
     Indication: NASAL SINUS CANCER
     Route: 042
     Dates: start: 20081008, end: 20081104
  4. DEXAMETHASONE [Concomitant]
  5. ALPRAZOLAM [Concomitant]
  6. CIPRO [Concomitant]
  7. FLOXIN [Concomitant]
  8. NEXIUM [Concomitant]
  9. PROTONIX [Concomitant]
  10. ONDANSETRON [Concomitant]
  11. MORPHINE [Concomitant]
  12. DOCUSATE [Concomitant]
  13. VYTORIN [Concomitant]
  14. EMEND [Concomitant]
     Route: 042
     Dates: end: 20081030

REACTIONS (5)
  - ABDOMINAL PAIN [None]
  - CONSTIPATION [None]
  - ELECTROLYTE IMBALANCE [None]
  - LEUKOPENIA [None]
  - URINARY RETENTION [None]
